FAERS Safety Report 16086052 (Version 2)
Quarter: 2019Q2

REPORT INFORMATION
  Report Type: Report from Study
  Country: US (occurrence: US)
  Receive Date: 20190318
  Receipt Date: 20190503
  Transmission Date: 20190711
  Serious: Yes (Death)
  Sender: FDA-Public Use
  Company Number: US-EXELIXIS-CABO-19018931

PATIENT
  Age: 78 Year
  Sex: Male

DRUGS (1)
  1. CABOMETYX [Suspect]
     Active Substance: CABOZANTINIB S-MALATE
     Indication: RENAL CANCER
     Dosage: 60 MG, QD  (WITHOUT FOOD)
     Dates: start: 20190204

REACTIONS (10)
  - Stomatitis [Recovering/Resolving]
  - Death [Fatal]
  - Joint swelling [Unknown]
  - Alopecia [Unknown]
  - Fall [Unknown]
  - Flushing [Unknown]
  - Muscular weakness [Unknown]
  - Blood pressure increased [Unknown]
  - Weight decreased [Unknown]
  - Fluid retention [Unknown]

NARRATIVE: CASE EVENT DATE: 201902
